FAERS Safety Report 25595149 (Version 1)
Quarter: 2025Q3

REPORT INFORMATION
  Report Type: Spontaneous
  Country: US (occurrence: US)
  Receive Date: 20250723
  Receipt Date: 20250723
  Transmission Date: 20251020
  Serious: Yes (Hospitalization, Other)
  Sender: ABBVIE
  Company Number: US-ABBVIE-6380163

PATIENT
  Age: 64 Year
  Sex: Female

DRUGS (1)
  1. VENETOCLAX [Suspect]
     Active Substance: VENETOCLAX
     Indication: Chronic lymphocytic leukaemia
     Route: 048

REACTIONS (5)
  - Cytokine release syndrome [Recovering/Resolving]
  - Neutropenia [Unknown]
  - Hypotension [Unknown]
  - Neurotoxicity [Unknown]
  - Nervous system disorder [Unknown]
